FAERS Safety Report 19101595 (Version 3)
Quarter: 2021Q2

REPORT INFORMATION
  Report Type: Spontaneous
  Country: US (occurrence: US)
  Receive Date: 20210407
  Receipt Date: 20210615
  Transmission Date: 20210717
  Serious: No
  Sender: FDA-Public Use
  Company Number: US-SA-2021SA112953

PATIENT
  Age: 13 Year
  Sex: Male
  Weight: 64.86 kg

DRUGS (19)
  1. CEREZYME [Suspect]
     Active Substance: IMIGLUCERASE
     Indication: LIPIDOSIS
     Dosage: 3600 IU, QOW
     Route: 042
     Dates: start: 20190124
  2. NORMAL SALINE [Concomitant]
     Active Substance: SODIUM CHLORIDE
  3. ZYRTEC [Concomitant]
     Active Substance: CETIRIZINE HYDROCHLORIDE
  4. CETIRIZINE [Concomitant]
     Active Substance: CETIRIZINE HYDROCHLORIDE
  5. LIDOCAINE/PRILOCAINE [Concomitant]
     Active Substance: LIDOCAINE\PRILOCAINE
  6. STERILE WATER [Concomitant]
     Active Substance: WATER
  7. EPINEPHRINE. [Concomitant]
     Active Substance: EPINEPHRINE
  8. ZYRTEC [Concomitant]
     Active Substance: CETIRIZINE HYDROCHLORIDE
  9. PRILOCAINE [Concomitant]
     Active Substance: PRILOCAINE
  10. DIPHENHYDRAMINE. [Concomitant]
     Active Substance: DIPHENHYDRAMINE
  11. HEPARIN [Concomitant]
     Active Substance: HEPARIN SODIUM
  12. EPINEPHRINE. [Concomitant]
     Active Substance: EPINEPHRINE
  13. HEPARIN [Concomitant]
     Active Substance: HEPARIN SODIUM
  14. CEREZYME [Suspect]
     Active Substance: IMIGLUCERASE
     Indication: GAUCHER^S DISEASE
  15. CETIRIZINE [Concomitant]
     Active Substance: CETIRIZINE HYDROCHLORIDE
  16. METHYLPHENIDATE. [Concomitant]
     Active Substance: METHYLPHENIDATE
  17. DIPHENHYDRAMINE. [Concomitant]
     Active Substance: DIPHENHYDRAMINE
  18. NORMAL SALINE [Concomitant]
     Active Substance: SODIUM CHLORIDE
  19. METHYLPHENIDATE. [Concomitant]
     Active Substance: METHYLPHENIDATE

REACTIONS (2)
  - Device issue [Unknown]
  - COVID-19 [Unknown]

NARRATIVE: CASE EVENT DATE: 202103
